FAERS Safety Report 15200664 (Version 1)
Quarter: 2018Q3

REPORT INFORMATION
  Report Type: Spontaneous
  Country: SE (occurrence: SE)
  Receive Date: 20180726
  Receipt Date: 20180726
  Transmission Date: 20181010
  Serious: Yes (Other)
  Sender: FDA-Public Use
  Company Number: SE-TEVA-2018-SE-930829

PATIENT
  Age: 91 Year
  Sex: Female

DRUGS (12)
  1. TROMBYL [Concomitant]
     Active Substance: ASPIRIN
     Route: 065
  2. MOVICOL [Concomitant]
     Active Substance: POLYETHYLENE GLYCOL 3350\POTASSIUM CHLORIDE\SODIUM BICARBONATE\SODIUM CHLORIDE
     Route: 065
  3. OXYNORM [Concomitant]
     Active Substance: OXYCODONE HYDROCHLORIDE
     Route: 065
  4. LOSARTAN. [Concomitant]
     Active Substance: LOSARTAN
     Route: 065
  5. PARAFLEX [Concomitant]
     Active Substance: CHLORZOXAZONE
     Route: 065
  6. XALATAN [Concomitant]
     Active Substance: LATANOPROST
     Route: 065
  7. ALENDRONAT [Concomitant]
     Active Substance: ALENDRONATE SODIUM
     Route: 065
  8. ATORVASTATIN [Suspect]
     Active Substance: ATORVASTATIN
     Indication: HYPERLIPIDAEMIA
     Dosage: 20 MILLIGRAM DAILY;
     Route: 048
     Dates: start: 20180514, end: 20180525
  9. OXYCODONE [Concomitant]
     Active Substance: OXYCODONE
     Route: 065
  10. KALCIPOS?D [Concomitant]
     Active Substance: CALCIUM CARBONATE\CHOLECALCIFEROL
     Route: 065
  11. FELODIPINE. [Concomitant]
     Active Substance: FELODIPINE
     Route: 065
  12. ALVEDON [Concomitant]
     Active Substance: ACETAMINOPHEN
     Route: 065

REACTIONS (1)
  - Upper gastrointestinal haemorrhage [Recovered/Resolved]

NARRATIVE: CASE EVENT DATE: 20180524
